FAERS Safety Report 17306291 (Version 1)
Quarter: 2020Q1

REPORT INFORMATION
  Report Type: Spontaneous
  Country: DE (occurrence: DE)
  Receive Date: 20200123
  Receipt Date: 20200123
  Transmission Date: 20200409
  Serious: Yes (Other)
  Sender: FDA-Public Use
  Company Number: DE-MYLANLABS-2020M1006574

PATIENT
  Age: 33 Year
  Sex: Female
  Weight: 58 kg

DRUGS (2)
  1. CIMICIFUGA                         /01456805/ [Suspect]
     Active Substance: BLACK COHOSH
     Indication: PRODUCT USED FOR UNKNOWN INDICATION
     Dosage: KURZE EINNAHMEZEIT
     Route: 048
  2. PANTOPRAZOLE [Suspect]
     Active Substance: PANTOPRAZOLE
     Indication: PRODUCT USED FOR UNKNOWN INDICATION
     Dosage: 40 M TBL 1-0-1
     Route: 048
     Dates: start: 20190905, end: 20191003

REACTIONS (11)
  - Malaise [Unknown]
  - Jaundice [Unknown]
  - Abdominal discomfort [Unknown]
  - Blood bilirubin increased [Unknown]
  - Coagulation time abnormal [Unknown]
  - Decreased appetite [Unknown]
  - Hepatic enzyme increased [Unknown]
  - Asthenia [Unknown]
  - Acute hepatic failure [Not Recovered/Not Resolved]
  - Nausea [Unknown]
  - Weight decreased [Unknown]

NARRATIVE: CASE EVENT DATE: 20191010
